FAERS Safety Report 25080439 (Version 2)
Quarter: 2025Q1

REPORT INFORMATION
  Report Type: Report from Study
  Country: US (occurrence: US)
  Receive Date: 20250315
  Receipt Date: 20250321
  Transmission Date: 20250409
  Serious: Yes (Hospitalization)
  Sender: JAZZ
  Company Number: US-JAZZ PHARMACEUTICALS-2025-US-006612

PATIENT
  Age: 56 Year
  Sex: Male

DRUGS (1)
  1. EPIDIOLEX [Suspect]
     Active Substance: CANNABIDIOL
     Indication: Focal dyscognitive seizures
     Dosage: 5 MILLILITER (500 MG TOTAL), BID
     Route: 048
     Dates: start: 20221216

REACTIONS (6)
  - Hospitalisation [Unknown]
  - Seizure [Recovered/Resolved]
  - Device occlusion [Recovered/Resolved]
  - Living in residential institution [Unknown]
  - Hospice care [Unknown]
  - Product administration interrupted [Unknown]

NARRATIVE: CASE EVENT DATE: 20240912
